FAERS Safety Report 4862332-2 (Version None)
Quarter: 2005Q4

REPORT INFORMATION
  Report Type: 
  Country: None (occurrence: None)
  Receive Date: 20051221
  Receipt Date: 20051209
  Transmission Date: 20060501
  Serious: Yes (Other)
  Sender: FDA-Public Use
  Company Number: CA-BRISTOL-MYERS SQUIBB COMPANY-13217260

PATIENT
  Age: 88 Year
  Sex: Male

DRUGS (12)
  1. TEQUIN [Suspect]
     Route: 048
  2. GLYBURIDE [Suspect]
     Route: 048
  3. ELTROXIN [Concomitant]
     Route: 048
  4. FERROUS SULFATE TAB [Concomitant]
     Route: 048
  5. HYDROCHLOROTHIAZIDE [Concomitant]
     Route: 048
  6. INHIBACE [Concomitant]
     Route: 048
  7. LASIX [Concomitant]
     Route: 048
  8. LOVENOX [Concomitant]
     Route: 058
  9. MAGNESIUM [Concomitant]
     Route: 048
  10. MAGNESIUM SULFATE [Concomitant]
     Route: 042
  11. PANTOPRAZOLE SODIUM [Concomitant]
     Route: 048
  12. VENTOLIN [Concomitant]
     Route: 055

REACTIONS (1)
  - HYPOGLYCAEMIA [None]
